FAERS Safety Report 9687864 (Version 5)
Quarter: 2014Q1

REPORT INFORMATION
  Report Type: Report from Study
  Country: CO (occurrence: CO)
  Receive Date: 20131114
  Receipt Date: 20140219
  Transmission Date: 20141002
  Serious: Yes (Hospitalization, Other)
  Sender: FDA-Public Use
  Company Number: CO-ROCHE-1304141

PATIENT
  Age: 62 Year
  Sex: Male
  Weight: 73.09 kg

DRUGS (3)
  1. LUCENTIS [Suspect]
     Indication: MACULAR DEGENERATION
     Route: 050
     Dates: start: 201308
  2. LUCENTIS [Suspect]
     Route: 050
  3. NILOTINIB [Concomitant]

REACTIONS (2)
  - Localised infection [Recovering/Resolving]
  - Diabetes mellitus [Recovering/Resolving]
